FAERS Safety Report 20313398 (Version 1)
Quarter: 2022Q1

REPORT INFORMATION
  Report Type: Spontaneous
  Country: US (occurrence: US)
  Receive Date: 20220110
  Receipt Date: 20220110
  Transmission Date: 20220423
  Serious: Yes (Other)
  Sender: FDA-Public Use
  Company Number: US-BAUSCH-BL-2022-000511

PATIENT
  Age: 63 Year
  Sex: Female

DRUGS (1)
  1. LACRISERT [Suspect]
     Active Substance: HYDROXYPROPYL CELLULOSE
     Indication: Ulcerative keratitis
     Route: 047

REACTIONS (3)
  - Corneal perforation [Unknown]
  - Therapy interrupted [Unknown]
  - Wrong technique in product usage process [Unknown]
